FAERS Safety Report 8237330-1 (Version None)
Quarter: 2012Q1

REPORT INFORMATION
  Report Type: 
  Country: None (occurrence: None)
  Receive Date: 20120327
  Receipt Date: 20120320
  Transmission Date: 20120608
  Serious: Yes (Death)
  Sender: FDA-Public Use
  Company Number: FI-PFIZER INC-2012049011

PATIENT
  Age: 27 Year
  Sex: Male

DRUGS (5)
  1. PREGABALIN [Suspect]
     Dosage: UNK
  2. CODEINE [Concomitant]
  3. CLONAZEPAM [Concomitant]
  4. FLUOXETINE [Concomitant]
  5. TRAMADOL [Concomitant]

REACTIONS (1)
  - ACCIDENTAL POISONING [None]
